FAERS Safety Report 25499517 (Version 1)
Quarter: 2025Q2

REPORT INFORMATION
  Report Type: Spontaneous
  Country: US (occurrence: None)
  Receive Date: 20250628
  Receipt Date: 20250628
  Transmission Date: 20250716
  Serious: Yes (Life-Threatening, Hospitalization, Disabling, Other)
  Sender: FDA-CTU
  Company Number: None

PATIENT
  Age: 56 Year
  Sex: Female
  Weight: 69.75 kg

DRUGS (8)
  1. CITALOPRAM [Suspect]
     Active Substance: CITALOPRAM
     Indication: Anxiety
     Dosage: FREQUENCY : AT BEDTIME;?
     Route: 048
     Dates: start: 20101001, end: 20210801
  2. CITALOPRAM [Suspect]
     Active Substance: CITALOPRAM
     Indication: Depression
  3. ESCITALOPRAM [Suspect]
     Active Substance: ESCITALOPRAM OXALATE
  4. REXULTI [Suspect]
     Active Substance: BREXPIPRAZOLE
  5. VITAMINS [Concomitant]
     Active Substance: VITAMINS
  6. MAGNESIUM [Concomitant]
     Active Substance: MAGNESIUM
  7. Bisglycinate [Concomitant]
  8. MELATONIN [Concomitant]
     Active Substance: MELATONIN

REACTIONS (17)
  - Drug ineffective [None]
  - Anxiety [None]
  - Hysterectomy [None]
  - Suicidal ideation [None]
  - Withdrawal syndrome [None]
  - Fear [None]
  - Electric shock sensation [None]
  - Akathisia [None]
  - Cognitive disorder [None]
  - Insomnia [None]
  - Sensory disturbance [None]
  - Depersonalisation/derealisation disorder [None]
  - Hypophagia [None]
  - Weight decreased [None]
  - Sjogren^s syndrome [None]
  - Magnetic resonance imaging head abnormal [None]
  - Depression [None]

NARRATIVE: CASE EVENT DATE: 20210501
